FAERS Safety Report 12961064 (Version 2)
Quarter: 2016Q4

REPORT INFORMATION
  Report Type: Report from Study
  Country: US (occurrence: US)
  Receive Date: 20161121
  Receipt Date: 20161205
  Transmission Date: 20170207
  Serious: Yes (Hospitalization, Other)
  Sender: FDA-Public Use
  Company Number: US-GILEAD-2016-0243613

PATIENT
  Age: 28 Year
  Sex: Female
  Weight: 55.33 kg

DRUGS (13)
  1. AZTREONAM LYSINE [Suspect]
     Active Substance: AZTREONAM LYSINE
     Indication: PSEUDOMONAS INFECTION
  2. HUMALOG [Concomitant]
     Active Substance: INSULIN LISPRO
     Dosage: 1 UNIT FOR EVERY 20 GRAMS OF CARB PLUS SLIDING SCALE OF 1 UNIT FOR EVERY 50 MG/DL
     Route: 058
     Dates: start: 20161024
  3. LINEZOLID. [Concomitant]
     Active Substance: LINEZOLID
     Dosage: 600 MG, BID
     Route: 048
     Dates: start: 20161011
  4. AZTREONAM LYSINE [Suspect]
     Active Substance: AZTREONAM LYSINE
     Indication: CYSTIC FIBROSIS LUNG
     Dosage: 75 MG, TID FOR 28 DAYS EVERY OTHER MONTH
     Route: 055
     Dates: start: 20160407
  5. AZTREONAM LYSINE [Suspect]
     Active Substance: AZTREONAM LYSINE
     Indication: BACTERIAL DISEASE CARRIER
  6. GLUCAGON EMERGENCY KIT [Concomitant]
     Active Substance: GLUCAGON
     Dosage: 1 MG, USE AS DIRECTED
     Dates: start: 20161011
  7. VENTOLIN HFA [Concomitant]
     Active Substance: ALBUTEROL SULFATE
     Dosage: 108 (90 BASE) MCG/ACT INHALE 2 PUFFS TWICE PER DAY
     Route: 055
     Dates: start: 20150223
  8. CREON [Concomitant]
     Active Substance: PANCRELIPASE AMYLASE\PANCRELIPASE LIPASE\PANCRELIPASE PROTEASE
     Dosage: 2 CAPSULE WITH MEALS AND SNACKS
     Route: 048
     Dates: start: 20120130
  9. ELIQUIS [Concomitant]
     Active Substance: APIXABAN
     Dosage: 5 MG, BID
     Route: 048
     Dates: start: 20161011
  10. PULMOZYME [Concomitant]
     Active Substance: DORNASE ALFA
     Dosage: 1 MG/ML USE ONE VIAL IN NEBULIZER TWO TIMES PER DAY
     Route: 055
     Dates: start: 20120130
  11. ALBUTEROL SULFATE. [Concomitant]
     Active Substance: ALBUTEROL SULFATE
     Dosage: 2.5 MG, QD
     Route: 055
     Dates: start: 20160229
  12. ORSYTHIA [Concomitant]
     Active Substance: ETHINYL ESTRADIOL\LEVONORGESTREL
     Dosage: 0.1-20 MG-MCG 1 EVERY DAY AS DIRECTED
     Route: 048
     Dates: start: 20160624
  13. VITAMIN D3 [Concomitant]
     Active Substance: CHOLECALCIFEROL
     Dosage: 1 CAPSULE TWICE DAILY
     Dates: start: 20160215

REACTIONS (1)
  - Cystic fibrosis [Recovered/Resolved]

NARRATIVE: CASE EVENT DATE: 20161007
